FAERS Safety Report 9805903 (Version 2)
Quarter: 2014Q1

REPORT INFORMATION
  Report Type: Spontaneous
  Country: US (occurrence: US)
  Receive Date: 20140109
  Receipt Date: 20140109
  Transmission Date: 20141002
  Serious: Yes (Other)
  Sender: FDA-Public Use
  Company Number: US-B.I. PHARMACEUTICALS,INC./RIDGEFIELD-2013-BI-22447BP

PATIENT
  Sex: Male
  Weight: 81.65 kg

DRUGS (16)
  1. PRADAXA [Suspect]
     Dosage: 300 MG
     Dates: start: 20120103, end: 20130306
  2. DILTIAZEM [Concomitant]
  3. ZYRTEC [Concomitant]
  4. COMBIVENT [Concomitant]
  5. NIASPAN [Concomitant]
  6. HYPROMELLOSE [Concomitant]
  7. CINNAMON [Concomitant]
  8. L-ARGININE [Concomitant]
  9. VITAMIN D3 [Concomitant]
  10. OCUVITE LUTEIN [Concomitant]
  11. ALPRAZOLAM [Concomitant]
  12. METOPROLOL [Concomitant]
  13. SIMVASTATIN [Concomitant]
  14. MULTAQ [Concomitant]
  15. TRAMADOL [Concomitant]
  16. NASONEX [Concomitant]

REACTIONS (2)
  - Rectal haemorrhage [Unknown]
  - Anaemia [Unknown]
